FAERS Safety Report 9633544 (Version 1)
Quarter: 2013Q4

REPORT INFORMATION
  Report Type: Spontaneous
  Country: US (occurrence: US)
  Receive Date: 20131021
  Receipt Date: 20131021
  Transmission Date: 20140711
  Serious: Yes (Other)
  Sender: FDA-Public Use
  Company Number: PHEH2013US021647

PATIENT
  Age: 82 Year
  Sex: Male

DRUGS (3)
  1. ZOMETA [Suspect]
     Indication: HORMONE-REFRACTORY PROSTATE CANCER
     Dosage: UNK UKN, UNK
  2. XGEVA [Suspect]
     Indication: HORMONE-REFRACTORY PROSTATE CANCER
     Dosage: UNK UKN, UNK
  3. ENZALUTAMIDE [Concomitant]

REACTIONS (4)
  - Exposed bone in jaw [Unknown]
  - Infection [Unknown]
  - Abscess [Unknown]
  - Swelling [Unknown]
